FAERS Safety Report 7434962-5 (Version None)
Quarter: 2011Q2

REPORT INFORMATION
  Report Type: 
  Country: None (occurrence: None)
  Receive Date: 20110415
  Receipt Date: 20110406
  Transmission Date: 20111010
  Serious: Yes (Other)
  Sender: FDA-Public Use
  Company Number: 2011MA002594

PATIENT
  Sex: Female

DRUGS (7)
  1. PHOSPHATE ION [Concomitant]
  2. LORATADINE [Concomitant]
  3. VOLTAREN [Concomitant]
  4. ACETAMINOPHEN AND CODEINE PHOSPHATE [Concomitant]
  5. SUMATRIPTAN [Concomitant]
  6. AMITRIPTYLINE [Concomitant]
  7. GABAPENTIN [Suspect]
     Indication: PAIN
     Dosage: 900 MG;TID;PO
     Route: 048
     Dates: start: 20110107, end: 20110201

REACTIONS (2)
  - SLEEP TALKING [None]
  - SOMNAMBULISM [None]
